FAERS Safety Report 18470730 (Version 1)
Quarter: 2020Q4

REPORT INFORMATION
  Report Type: Spontaneous
  Country: GB (occurrence: GB)
  Receive Date: 20201106
  Receipt Date: 20201106
  Transmission Date: 20210114
  Serious: Yes (Life-Threatening, Hospitalization, Other)
  Sender: FDA-Public Use
  Company Number: GB-ADVANZ PHARMA-202010009775

PATIENT

DRUGS (11)
  1. CIPROFLOXACIN. [Concomitant]
     Active Substance: CIPROFLOXACIN
  2. TIMOLOL AND BIMATOPROST [Concomitant]
  3. DIGOXIN. [Suspect]
     Active Substance: DIGOXIN
     Indication: ATRIAL FIBRILLATION
     Dosage: 1.25 UG
     Route: 048
  4. LACTULOSE, LIQUID [Concomitant]
     Active Substance: LACTULOSE
  5. AMLODIPINE BESILATE [Concomitant]
     Active Substance: AMLODIPINE BESYLATE
  6. APIXABAN [Concomitant]
     Active Substance: APIXABAN
  7. PARACETAMOL [Concomitant]
     Active Substance: ACETAMINOPHEN
  8. COLECALCIFEROL [Concomitant]
     Active Substance: CHOLECALCIFEROL
  9. BUMETANIDE. [Concomitant]
     Active Substance: BUMETANIDE
  10. ATENOLOL. [Concomitant]
     Active Substance: ATENOLOL
  11. OMEPRAZOLE. [Concomitant]
     Active Substance: OMEPRAZOLE

REACTIONS (6)
  - Dyspnoea [Unknown]
  - Toxicity to various agents [Not Recovered/Not Resolved]
  - Bradycardia [Unknown]
  - Vomiting [Unknown]
  - Hyperkalaemia [Unknown]
  - Acute kidney injury [Unknown]

NARRATIVE: CASE EVENT DATE: 20201010
